FAERS Safety Report 7426966-3 (Version None)
Quarter: 2011Q2

REPORT INFORMATION
  Report Type: 
  Country: None (occurrence: None)
  Receive Date: 20110420
  Receipt Date: 20110411
  Transmission Date: 20111010
  Serious: Yes (Hospitalization, Other)
  Sender: FDA-Public Use
  Company Number: FR-BAYER-2011-031838

PATIENT
  Age: 20 Year
  Sex: Female

DRUGS (1)
  1. QLAIRA [Suspect]
     Dosage: UNK
     Dates: start: 20101201

REACTIONS (2)
  - PULMONARY EMBOLISM [None]
  - PHLEBITIS [None]
